FAERS Safety Report 4521002-0 (Version None)
Quarter: 2004Q4

REPORT INFORMATION
  Report Type: 
  Country: None (occurrence: None)
  Receive Date: 20041206
  Receipt Date: 20041125
  Transmission Date: 20050328
  Serious: Yes (Hospitalization)
  Sender: FDA-Public Use
  Company Number: 2004089659

PATIENT
  Age: 37 Year
  Sex: Female
  Weight: 79 kg

DRUGS (17)
  1. ZITHROMAX [Suspect]
     Indication: BRONCHITIS
     Dosage: 500 MG (500 MG, 1 IN 1 D), ORAL
     Route: 048
     Dates: start: 20040929, end: 20040930
  2. TEPRENONE (TEPRENONE) [Concomitant]
  3. DEXTROMETHORPHAN HYDROBROMIDE (DEXTROMETHORPHAN HYDROBROMIDE) [Concomitant]
  4. FUDOSTEINE (FUDOSTEINE) [Concomitant]
  5. THEOPHYLLINE [Concomitant]
  6. MONTELUKAST SODIUM (MONTELUKAST SODIUM) [Concomitant]
  7. ALL OTHER THERAPEUTIC PRODUCTS (ALL OTHER THERAPEUTIC PRODUCTS) [Concomitant]
  8. SALMETEROL XINAFOATE (SALMETEROL XINAFOATE) [Concomitant]
  9. FLUTICASONE PROPIONATE [Concomitant]
  10. SUPLATAST TOSILATE (SUPLATAST TOSILATE) [Concomitant]
  11. COUGH AND COLD PREPARATIONS (COUGH AND COLD PREPARATIONS) [Concomitant]
  12. EPINASTINE HYDROCHLORIDE (EPINASTINE HYDROCHLORIDE) [Concomitant]
  13. TERBINAFINE HCL [Concomitant]
  14. MECOBALAMIN (MECOBALAMIN) [Concomitant]
  15. DIFENIDOL HYDROCHLORIDE (DIFENIDOL HYDROCHLORIDE) [Concomitant]
  16. BETAHISTINE HYDROCHLORIDE (BETAHISTINE HYDROCHLORIDE) [Concomitant]
  17. BUFFERIN [Concomitant]

REACTIONS (3)
  - ENTEROCOLITIS HAEMORRHAGIC [None]
  - MELAENA [None]
  - OEDEMA MUCOSAL [None]
